FAERS Safety Report 5557498-5 (Version None)
Quarter: 2007Q4

REPORT INFORMATION
  Report Type: 
  Country: None (occurrence: None)
  Receive Date: 20071214
  Receipt Date: 20071207
  Transmission Date: 20080405
  Serious: Yes (Other)
  Sender: FDA-Public Use
  Company Number: US-WYE-H01621207

PATIENT
  Sex: Female

DRUGS (2)
  1. NORPLANT SYSTEM [Suspect]
     Indication: CONTRACEPTION
     Dosage: SIX CAPSULES
     Route: 058
     Dates: start: 19920101, end: 19940101
  2. NORPLANT SYSTEM [Suspect]
     Dosage: LESS THAN SIX CAPSULES
     Route: 058
     Dates: start: 19940101

REACTIONS (4)
  - COMPLICATION OF DEVICE REMOVAL [None]
  - DEVICE MIGRATION [None]
  - HEADACHE [None]
  - PREGNANCY [None]
